FAERS Safety Report 20038345 (Version 1)
Quarter: 2021Q4

REPORT INFORMATION
  Report Type: Spontaneous
  Country: US (occurrence: US)
  Receive Date: 20211105
  Receipt Date: 20211105
  Transmission Date: 20220304
  Serious: No
  Sender: FDA-Public Use
  Company Number: US-EYEVANCE PHARMACEUTICALS-2020EYE00285

PATIENT
  Sex: Male

DRUGS (2)
  1. NATACYN [Suspect]
     Active Substance: NATAMYCIN
     Indication: Eye ulcer
     Dosage: EVERY HOUR
  2. MOXIFLOXACIN [Concomitant]
     Active Substance: MOXIFLOXACIN
     Dosage: EVERY HOUR

REACTIONS (6)
  - Ocular discomfort [Unknown]
  - Product physical issue [Unknown]
  - Eye pain [Unknown]
  - Product use in unapproved indication [Unknown]
  - Fear [Unknown]
  - Frustration tolerance decreased [Unknown]
